FAERS Safety Report 5263252-4 (Version None)
Quarter: 2007Q1

REPORT INFORMATION
  Report Type: 
  Country: None (occurrence: None)
  Receive Date: 20061219
  Receipt Date: 20060830
  Transmission Date: 20070707
  Serious: No
  Sender: FDA-Public Use
  Company Number: 2006US002163

PATIENT
  Sex: Female

DRUGS (1)
  1. VESICARE [Suspect]

REACTIONS (2)
  - DIPLOPIA [None]
  - VISION BLURRED [None]
